FAERS Safety Report 10754671 (Version 4)
Quarter: 2015Q3

REPORT INFORMATION
  Report Type: Spontaneous
  Country: JP (occurrence: JP)
  Receive Date: 20150202
  Receipt Date: 20150723
  Transmission Date: 20151125
  Serious: Yes (Life-Threatening)
  Sender: FDA-Public Use
  Company Number: JP-MALLINCKRODT-T201404009

PATIENT
  Age: 85 Year
  Sex: Male

DRUGS (31)
  1. METHADONE [Suspect]
     Active Substance: METHADONE HYDROCHLORIDE
     Dosage: 10 MG, (20 MG DAILY DOSE)
     Route: 048
     Dates: start: 20140712, end: 20140718
  2. METHADONE [Suspect]
     Active Substance: METHADONE HYDROCHLORIDE
     Dosage: 10 MG, (30 MG DAILY DOSE)
     Dates: start: 20140719, end: 20140725
  3. ALFACALCIDOL [Concomitant]
     Active Substance: ALFACALCIDOL
     Dosage: 1 ?G
     Route: 048
     Dates: end: 20140815
  4. NATRIX [Concomitant]
     Active Substance: INDAPAMIDE
     Dosage: 1 MG
     Route: 048
     Dates: end: 20140705
  5. MAGMITT [Concomitant]
     Active Substance: MAGNESIUM OXIDE
     Dosage: 990 MG
     Route: 048
  6. LYRICA [Concomitant]
     Active Substance: PREGABALIN
     Dosage: 150 MG
     Route: 048
     Dates: start: 20140811, end: 20150513
  7. METHADONE [Suspect]
     Active Substance: METHADONE HYDROCHLORIDE
     Dosage: 30 MG, (90 MG DAILY DOSE)
     Route: 048
     Dates: start: 20140827, end: 20141001
  8. OXINORM [Concomitant]
     Active Substance: OXYCODONE HYDROCHLORIDE
     Dosage: 10 MG, PRN
     Route: 048
     Dates: start: 20140704
  9. ABSTRAL [Concomitant]
     Active Substance: FENTANYL CITRATE
     Dosage: 100 ?G, PRN
     Route: 060
     Dates: start: 20140706
  10. ADONA [Concomitant]
     Active Substance: CARBAZOCHROME SODIUM SULFONATE
     Dosage: 30 MG
     Route: 048
     Dates: end: 20140705
  11. METHADONE [Suspect]
     Active Substance: METHADONE HYDROCHLORIDE
     Dosage: 20 MG, (60 MG DAILY DOSE)
     Route: 048
     Dates: start: 20140809, end: 20140826
  12. METHADONE [Suspect]
     Active Substance: METHADONE HYDROCHLORIDE
     Dosage: 50 MG, (150 MG DAILY DOSE)
     Route: 048
     Dates: start: 20141017, end: 20150507
  13. CASODEX [Concomitant]
     Active Substance: BICALUTAMIDE
     Indication: PROSTATE CANCER
     Dosage: 80 MG
     Route: 048
     Dates: end: 20150513
  14. RINDERON V [Concomitant]
     Active Substance: BETAMETHASONE VALERATE
     Dosage: 2 MG
     Route: 051
     Dates: start: 20140913, end: 20141020
  15. REBAMIPIDE [Concomitant]
     Active Substance: REBAMIPIDE
     Dosage: 200 MG
     Route: 048
     Dates: end: 20150513
  16. METHADONE [Suspect]
     Active Substance: METHADONE HYDROCHLORIDE
     Indication: CANCER PAIN
     Dosage: 5 MG, (15 MG DAILY DOSE)
     Route: 048
     Dates: start: 20140705, end: 20140711
  17. BAYASPIRIN [Concomitant]
     Active Substance: ASPIRIN
     Dosage: 100 MG
     Route: 048
     Dates: end: 20140705
  18. LANSOPRAZOLE. [Concomitant]
     Active Substance: LANSOPRAZOLE
     Dosage: 15 MG
     Route: 048
     Dates: end: 20150513
  19. RINDERON V [Concomitant]
     Active Substance: BETAMETHASONE VALERATE
     Dosage: 2 MG
     Route: 048
     Dates: start: 20141021, end: 20150513
  20. ASPARA-CA [Concomitant]
     Active Substance: CALCIUM ASPARTATE
     Dosage: 600 MG
     Route: 048
     Dates: end: 20140814
  21. ADALAT [Concomitant]
     Active Substance: NIFEDIPINE
     Dosage: 40 MG
     Route: 048
     Dates: end: 20140705
  22. DEGARELIX ACETATE [Concomitant]
     Active Substance: DEGARELIX ACETATE
     Indication: PROSTATE CANCER
     Dosage: 80 MG
     Route: 058
     Dates: end: 20150513
  23. DENOSUMAB [Concomitant]
     Active Substance: DENOSUMAB
     Dosage: 120 MG
     Route: 058
     Dates: end: 20150403
  24. METHADONE [Suspect]
     Active Substance: METHADONE HYDROCHLORIDE
     Dosage: 15 MG, (45 MG DAILY DOSE)
     Route: 048
     Dates: start: 20140726, end: 20140808
  25. METHADONE [Suspect]
     Active Substance: METHADONE HYDROCHLORIDE
     Dosage: 40 MG, (120 MG DAILY DOSE)
     Route: 048
     Dates: start: 20141002, end: 20141016
  26. BETANIS [Concomitant]
     Active Substance: MIRABEGRON
     Dosage: 50 MG
     Route: 048
     Dates: end: 20150513
  27. BLOPRESS [Concomitant]
     Active Substance: CANDESARTAN CILEXETIL
     Dosage: 8 MG
     Route: 048
     Dates: end: 20140705
  28. HYPEN [Concomitant]
     Active Substance: ETODOLAC
     Dosage: 400 MG
     Route: 048
     Dates: end: 20150513
  29. CARNACULIN [Concomitant]
     Active Substance: KALLIDINOGENASE
     Dosage: 150 DF
     Route: 048
     Dates: end: 20141120
  30. RINDERON V [Concomitant]
     Active Substance: BETAMETHASONE VALERATE
     Dosage: 4 MG
     Route: 051
     Dates: start: 20140812, end: 20140912
  31. ACETAMINOPHEN. [Concomitant]
     Active Substance: ACETAMINOPHEN
     Dosage: 2 G
     Route: 051
     Dates: start: 20150503

REACTIONS (5)
  - Somnolence [Recovered/Resolved]
  - Pneumonia [Recovered/Resolved]
  - Nausea [Recovered/Resolved]
  - Bronchitis chronic [Not Recovered/Not Resolved]
  - Cardiac failure chronic [Recovered/Resolved]

NARRATIVE: CASE EVENT DATE: 20140731
